FAERS Safety Report 4336070-9 (Version None)
Quarter: 2004Q1

REPORT INFORMATION
  Report Type: 
  Country: None (occurrence: None)
  Receive Date: 20040329
  Receipt Date: 20040105
  Transmission Date: 20041129
  Serious: No
  Sender: FDA-Public Use
  Company Number: USA040155784

PATIENT
  Age: 10 Year
  Sex: Male
  Weight: 41 kg

DRUGS (3)
  1. STRATTERA [Suspect]
     Dosage: 80 MG/IN THE MORNING
  2. PROZAC [Concomitant]
  3. CLONIDINE [Concomitant]

REACTIONS (2)
  - PRESCRIBED OVERDOSE [None]
  - TACHYCARDIA [None]
